FAERS Safety Report 6691970-X (Version None)
Quarter: 2010Q2

REPORT INFORMATION
  Report Type: 
  Country: None (occurrence: None)
  Receive Date: 20100422
  Receipt Date: 20100417
  Transmission Date: 20101027
  Serious: Yes (Death, Other)
  Sender: FDA-Public Use
  Company Number: PHHY2010MX24416

PATIENT
  Sex: Female

DRUGS (3)
  1. STALEVO 100 [Suspect]
     Indication: PARKINSON'S DISEASE
     Dosage: UNK
     Route: 048
  2. TELMISARTAN [Concomitant]
     Indication: HYPERTENSION
  3. TRAMACET [Concomitant]

REACTIONS (5)
  - FALL [None]
  - FRACTURE [None]
  - LIVER DISORDER [None]
  - RENAL DISORDER [None]
  - RESPIRATORY ARREST [None]
